FAERS Safety Report 11922371 (Version 3)
Quarter: 2017Q3

REPORT INFORMATION
  Report Type: Spontaneous
  Country: US (occurrence: US)
  Receive Date: 20160115
  Receipt Date: 20170829
  Transmission Date: 20171127
  Serious: No
  Sender: FDA-Public Use
  Company Number: US-SA-2016SA006859

PATIENT
  Age: 53 Year
  Sex: Male

DRUGS (1)
  1. FABRAZYME [Suspect]
     Active Substance: AGALSIDASE BETA
     Indication: FABRY^S DISEASE
     Dosage: DOSE: 70 MG AND 25 MG
     Route: 041
     Dates: start: 20150128

REACTIONS (5)
  - Cardiac stress test abnormal [Unknown]
  - Acne [Unknown]
  - Renal cyst [Unknown]
  - Headache [Unknown]
  - Rosacea [Unknown]

NARRATIVE: CASE EVENT DATE: 20160311
